FAERS Safety Report 25231366 (Version 2)
Quarter: 2025Q3

REPORT INFORMATION
  Report Type: Spontaneous
  Country: JP (occurrence: JP)
  Receive Date: 20250423
  Receipt Date: 20250809
  Transmission Date: 20251020
  Serious: Yes (Life-Threatening, Other)
  Sender: ALEXION PHARMACEUTICALS
  Company Number: JP-ASTRAZENECA-250014022_013120_P_1

PATIENT
  Age: 65 Year
  Sex: Female

DRUGS (22)
  1. IMFINZI [Suspect]
     Active Substance: DURVALUMAB
     Indication: Bile duct cancer
     Dates: start: 20240702, end: 20241105
  2. IMFINZI [Suspect]
     Active Substance: DURVALUMAB
  3. GEMCITABINE HYDROCHLORIDE [Concomitant]
     Active Substance: GEMCITABINE HYDROCHLORIDE
     Indication: Bile duct cancer
     Route: 065
  4. GEMCITABINE HYDROCHLORIDE [Concomitant]
     Active Substance: GEMCITABINE HYDROCHLORIDE
     Indication: Bile duct cancer
  5. CISPLATIN [Concomitant]
     Active Substance: CISPLATIN
     Indication: Bile duct cancer
     Route: 065
  6. CISPLATIN [Concomitant]
     Active Substance: CISPLATIN
     Indication: Bile duct cancer
     Route: 065
  7. CISPLATIN [Concomitant]
     Active Substance: CISPLATIN
     Route: 065
  8. PITAVASTATIN CALCIUM [Concomitant]
     Active Substance: PITAVASTATIN CALCIUM
     Route: 065
  9. REBAMIPIDE [Concomitant]
     Active Substance: REBAMIPIDE
     Route: 065
  10. MOSAPRIDE CITRATE [Concomitant]
     Active Substance: MOSAPRIDE CITRATE
     Route: 065
  11. FAMOTIDINE [Concomitant]
     Active Substance: FAMOTIDINE
     Route: 065
  12. URSO [Concomitant]
     Active Substance: URSODIOL
     Route: 065
  13. VOGLIBOSE [Concomitant]
     Active Substance: VOGLIBOSE
     Route: 065
  14. VOGLIBOSE [Concomitant]
     Active Substance: VOGLIBOSE
     Route: 065
  15. LINAGLIPTIN [Concomitant]
     Active Substance: LINAGLIPTIN
     Route: 065
  16. LINAGLIPTIN [Concomitant]
     Active Substance: LINAGLIPTIN
     Route: 065
  17. AZELNIDIPINE\OLMESARTAN MEDOXOMIL [Concomitant]
     Active Substance: AZELNIDIPINE\OLMESARTAN MEDOXOMIL
     Route: 065
  18. AZELNIDIPINE\OLMESARTAN MEDOXOMIL [Concomitant]
     Active Substance: AZELNIDIPINE\OLMESARTAN MEDOXOMIL
     Route: 065
  19. ELIQUIS [Concomitant]
     Active Substance: APIXABAN
     Route: 065
  20. ELIQUIS [Concomitant]
     Active Substance: APIXABAN
     Route: 065
  21. MIYA-BM [Concomitant]
     Active Substance: CLOSTRIDIUM BUTYRICUM SPORES STRAIN M-55
     Route: 065
  22. MIYA-BM [Concomitant]
     Active Substance: CLOSTRIDIUM BUTYRICUM SPORES STRAIN M-55
     Route: 065

REACTIONS (3)
  - Encephalitis [Recovering/Resolving]
  - Hypopituitarism [Recovering/Resolving]
  - Adrenal disorder [Recovering/Resolving]

NARRATIVE: CASE EVENT DATE: 20241230
